FAERS Safety Report 14006645 (Version 2)
Quarter: 2017Q4

REPORT INFORMATION
  Report Type: Spontaneous
  Country: US (occurrence: US)
  Receive Date: 20170925
  Receipt Date: 20171013
  Transmission Date: 20180321
  Serious: No
  Sender: FDA-Public Use
  Company Number: US-009507513-1709USA004809

PATIENT
  Age: 62 Year
  Sex: Female
  Weight: 84.3 kg

DRUGS (6)
  1. METAMUCIL [Concomitant]
     Active Substance: PLANTAGO SEED
     Dosage: UNK
  2. ZEPATIER [Suspect]
     Active Substance: ELBASVIR\GRAZOPREVIR
     Indication: HEPATITIS C
     Dosage: 1 TABLET, ONCE DAILY (QD)
     Route: 048
     Dates: start: 20170725
  3. SLOW MAG [Concomitant]
     Active Substance: MAGNESIUM CHLORIDE
     Dosage: UNK
  4. ESTRADIOL (+) PROGESTERONE [Concomitant]
     Dosage: UNK
  5. POTASSIUM (UNSPECIFIED) [Concomitant]
     Active Substance: POTASSIUM
     Dosage: UNK
  6. CARVEDILOL. [Concomitant]
     Active Substance: CARVEDILOL
     Dosage: UNK

REACTIONS (2)
  - Rash [Recovered/Resolved]
  - Intertrigo [Recovered/Resolved]

NARRATIVE: CASE EVENT DATE: 20170830
